FAERS Safety Report 19822855 (Version 1)
Quarter: 2021Q3

REPORT INFORMATION
  Report Type: Spontaneous
  Country: JP (occurrence: JP)
  Receive Date: 20210913
  Receipt Date: 20210913
  Transmission Date: 20211014
  Serious: Yes (Other)
  Sender: FDA-Public Use
  Company Number: JP-ROCHE-2908982

PATIENT
  Age: 60 Year
  Sex: Male

DRUGS (22)
  1. CYCLOPHOSPHAMIDE HYDRATE [Concomitant]
     Active Substance: CYCLOPHOSPHAMIDE
     Indication: DOUBLE HIT LYMPHOMA
  2. RITUXAN [Suspect]
     Active Substance: RITUXIMAB
     Indication: DOUBLE HIT LYMPHOMA
     Route: 041
     Dates: start: 202008
  3. DOXORUBICIN HYDROCHLORIDE. [Concomitant]
     Active Substance: DOXORUBICIN HYDROCHLORIDE
     Indication: DOUBLE HIT LYMPHOMA
     Route: 042
     Dates: start: 202009
  4. METHOTREXATE. [Concomitant]
     Active Substance: METHOTREXATE
     Indication: DOUBLE HIT LYMPHOMA
     Route: 065
     Dates: start: 202009
  5. METHYLPREDNISOLONE. [Concomitant]
     Active Substance: METHYLPREDNISOLONE
     Indication: DOUBLE HIT LYMPHOMA
     Route: 065
     Dates: start: 202010
  6. CISPLATIN. [Concomitant]
     Active Substance: CISPLATIN
     Indication: DOUBLE HIT LYMPHOMA
     Route: 042
     Dates: start: 202010
  7. MESNA. [Concomitant]
     Active Substance: MESNA
     Indication: DOUBLE HIT LYMPHOMA
     Route: 042
     Dates: start: 202012
  8. IFOSFAMIDE. [Concomitant]
     Active Substance: IFOSFAMIDE
     Indication: DOUBLE HIT LYMPHOMA
     Route: 042
     Dates: start: 202012
  9. MITOXANTRONE HYDROCHLORIDE. [Concomitant]
     Active Substance: MITOXANTRONE HYDROCHLORIDE
     Indication: DOUBLE HIT LYMPHOMA
     Route: 042
     Dates: start: 202012
  10. RITUXAN [Suspect]
     Active Substance: RITUXIMAB
     Route: 041
     Dates: start: 202009
  11. ETOPOSIDE. [Concomitant]
     Active Substance: ETOPOSIDE
     Indication: DOUBLE HIT LYMPHOMA
     Dosage: SUBSEQUENT DOSES RECEIVED ON OCT/2020, DEC/2020.
     Dates: start: 202009
  12. CARBOPLATIN. [Concomitant]
     Active Substance: CARBOPLATIN
     Indication: DOUBLE HIT LYMPHOMA
     Route: 042
     Dates: start: 202010
  13. CYTARABINE. [Concomitant]
     Active Substance: CYTARABINE
     Indication: DOUBLE HIT LYMPHOMA
     Route: 042
     Dates: start: 202010
  14. GEMCITABINE. [Concomitant]
     Active Substance: GEMCITABINE
  15. RITUXAN [Suspect]
     Active Substance: RITUXIMAB
     Route: 041
     Dates: start: 202010
  16. VINCRISTINE SULFATE. [Concomitant]
     Active Substance: VINCRISTINE SULFATE
     Indication: DOUBLE HIT LYMPHOMA
     Route: 041
     Dates: start: 202008
  17. FLUDARABINE PHOSPHATE. [Concomitant]
     Active Substance: FLUDARABINE PHOSPHATE
     Indication: DOUBLE HIT LYMPHOMA
  18. RITUXAN [Suspect]
     Active Substance: RITUXIMAB
     Route: 041
     Dates: start: 202012
  19. VINCRISTINE SULFATE. [Concomitant]
     Active Substance: VINCRISTINE SULFATE
     Route: 041
     Dates: start: 202009
  20. DEXAMETHASONE. [Concomitant]
     Active Substance: DEXAMETHASONE
     Indication: DOUBLE HIT LYMPHOMA
     Route: 065
  21. KYMRIAH [Suspect]
     Active Substance: TISAGENLECLEUCEL
     Indication: DOUBLE HIT LYMPHOMA
     Route: 042
     Dates: start: 20210319, end: 20210319
  22. PREDNISOLONE. [Concomitant]
     Active Substance: PREDNISOLONE
     Indication: DOUBLE HIT LYMPHOMA
     Dosage: SUBSEQUENT DOSES RECEIVED ON SEP/2020,OCT/2020
     Dates: start: 202008

REACTIONS (2)
  - Immune effector cell-associated neurotoxicity syndrome [Recovered/Resolved]
  - White blood cell count decreased [Unknown]
